FAERS Safety Report 17516146 (Version 3)
Quarter: 2021Q2

REPORT INFORMATION
  Report Type: Other
  Country: US (occurrence: US)
  Receive Date: 20200309
  Receipt Date: 20210420
  Transmission Date: 20210716
  Serious: Yes (Hospitalization)
  Sender: FDA-Public Use
  Company Number: US-ROCHE-2560661

PATIENT
  Age: 52 Year
  Sex: Female
  Weight: 59.02 kg

DRUGS (4)
  1. OCREVUS [Suspect]
     Active Substance: OCRELIZUMAB
     Indication: PRIMARY PROGRESSIVE MULTIPLE SCLEROSIS
     Dosage: INFUSE 300 MG DAY 1 AND DAY 15 THEN SUBSEQUENTLY 600 MG EVERY 6 MONTHS
     Route: 042
     Dates: start: 20180614
  2. OCREVUS [Suspect]
     Active Substance: OCRELIZUMAB
     Dosage: DATE OF INFUSION: 13/JUN/2018, 28/JUN/2018, 08/JAN/2019, 15/JUL/2019, 16/JAN/2020
     Route: 042
     Dates: start: 2018
  3. VITAMIN C [Concomitant]
     Active Substance: ASCORBIC ACID
     Route: 048
  4. TURMERIC [Concomitant]
     Active Substance: HERBALS\TURMERIC
     Route: 048
     Dates: start: 2020

REACTIONS (8)
  - White blood cell count decreased [Not Recovered/Not Resolved]
  - Joint stiffness [Not Recovered/Not Resolved]
  - Diverticulitis [Unknown]
  - Gait disturbance [Not Recovered/Not Resolved]
  - Asthenia [Not Recovered/Not Resolved]
  - Diplopia [Not Recovered/Not Resolved]
  - Mobility decreased [Not Recovered/Not Resolved]
  - Infection [Not Recovered/Not Resolved]

NARRATIVE: CASE EVENT DATE: 202002
